FAERS Safety Report 9863312 (Version 4)
Quarter: 2014Q2

REPORT INFORMATION
  Report Type: Spontaneous
  Country: US (occurrence: US)
  Receive Date: 20140203
  Receipt Date: 20140611
  Transmission Date: 20141212
  Serious: No
  Sender: FDA-Public Use
  Company Number: US-PFIZER INC-2014030187

PATIENT
  Age: 62 Year
  Sex: Female
  Weight: 69.39 kg

DRUGS (8)
  1. LYRICA [Suspect]
     Indication: NEUROMYELITIS OPTICA
     Dosage: 150 MG, 2X/DAY
     Route: 048
  2. LYRICA [Suspect]
     Dosage: 150 MG, 3X/DAY
     Route: 048
     Dates: start: 20140128
  3. AZATHIOPRINE [Concomitant]
     Dosage: 80 MG, ONE AND HALF TABLET ON MONDAY, WEDNESDAY AND FRIDAY AND ONE TABLET REST OF THE DAYS
  4. COREG [Concomitant]
     Dosage: 37.5 MG (BY TAKING ONE AND HALF PILL OF 25MG), 3X/DAY
  5. NORVASC [Concomitant]
     Dosage: 5 MG, DAILY
  6. TRILEPTAL [Concomitant]
     Dosage: 900 MG (BY TAKING ONE AND HALF PILL OF 600MG), 3X/DAY
  7. FLONASE [Concomitant]
     Dosage: UNK, 2X/DAY
     Route: 045
  8. ASPIRIN [Concomitant]
     Dosage: UNK

REACTIONS (4)
  - Off label use [Unknown]
  - Burning sensation [Recovered/Resolved]
  - Condition aggravated [Recovered/Resolved]
  - Pain [Recovered/Resolved]
